FAERS Safety Report 22088375 (Version 1)
Quarter: 2023Q1

REPORT INFORMATION
  Report Type: Spontaneous
  Country: US (occurrence: None)
  Receive Date: 20230311
  Receipt Date: 20230311
  Transmission Date: 20230418
  Serious: Yes (Death, Hospitalization)
  Sender: FDA-Public Use
  Company Number: None

PATIENT
  Age: 64 Year
  Sex: Female

DRUGS (20)
  1. KORLYM [Suspect]
     Active Substance: MIFEPRISTONE
     Indication: Pituitary-dependent Cushing^s syndrome
     Dosage: FREQUENCY : DAILY;?
     Route: 048
     Dates: start: 20211025, end: 20211119
  2. CLINDAMYCIN HCL [Concomitant]
  3. METHIMAZOLE [Concomitant]
     Active Substance: METHIMAZOLE
  4. CARVEDILOL [Concomitant]
     Active Substance: CARVEDILOL
  5. LISINOPRIL HCTZ [Concomitant]
  6. FUROSEMIDE [Concomitant]
     Active Substance: FUROSEMIDE
  7. GABAPENTIN [Concomitant]
     Active Substance: GABAPENTIN
  8. AMLODIPINE BESYLATE [Concomitant]
     Active Substance: AMLODIPINE BESYLATE
  9. ATORVASTATIN [Concomitant]
     Active Substance: ATORVASTATIN
  10. WARFARIN SODIUM [Concomitant]
     Active Substance: WARFARIN SODIUM
  11. METFORMIN HYDROCHLORIDE [Concomitant]
     Active Substance: METFORMIN HYDROCHLORIDE
  12. NOVOLOG [Concomitant]
     Active Substance: INSULIN ASPART
  13. OZEMPIC [Concomitant]
     Active Substance: SEMAGLUTIDE
  14. Dorzolamide Timolol (eye drops) [Concomitant]
  15. LUMIGAN [Concomitant]
     Active Substance: BIMATOPROST
  16. KORLYM [Concomitant]
     Active Substance: MIFEPRISTONE
  17. Iprat-Albut [Concomitant]
  18. SPIRONOLACTONE [Concomitant]
     Active Substance: SPIRONOLACTONE
  19. ACETAMINOPHEN [Concomitant]
     Active Substance: ACETAMINOPHEN
  20. POTASSIUM CHLORIDE [Concomitant]
     Active Substance: POTASSIUM CHLORIDE

REACTIONS (7)
  - Septic shock [None]
  - Organ failure [None]
  - Contusion [None]
  - Gastrointestinal haemorrhage [None]
  - Cardiac arrest [None]
  - Acute kidney injury [None]
  - Acute respiratory failure [None]

NARRATIVE: CASE EVENT DATE: 20211121
